FAERS Safety Report 15250579 (Version 1)
Quarter: 2018Q3

REPORT INFORMATION
  Report Type: Spontaneous
  Country: US (occurrence: US)
  Receive Date: 20180716
  Receipt Date: 20180716
  Transmission Date: 20181010
  Serious: Yes (Other)
  Sender: FDA-Public Use
  Company Number: None

PATIENT
  Age: 88 Year
  Sex: Female

DRUGS (1)
  1. FEBUXOSTAT. [Suspect]
     Active Substance: FEBUXOSTAT
     Dates: start: 20180602, end: 20180704

REACTIONS (3)
  - Pruritus [None]
  - Urinary tract infection [None]
  - Renal failure [None]

NARRATIVE: CASE EVENT DATE: 20180710
